FAERS Safety Report 5370660-X (Version None)
Quarter: 2007Q2

REPORT INFORMATION
  Report Type: 
  Country: None (occurrence: None)
  Receive Date: 20070618
  Receipt Date: 20060919
  Transmission Date: 20071010
  Serious: Yes (Hospitalization)
  Sender: FDA-Public Use
  Company Number: PHEH2006US06091

PATIENT
  Age: 79 Year
  Sex: Female

DRUGS (3)
  1. GLEEVEC [Suspect]
     Indication: CHRONIC MYELOID LEUKAEMIA
     Dosage: 300 MG, QD, ORAL, 800 MG, QD, ORAL
     Route: 048
     Dates: start: 20060101, end: 20060507
  2. HYDROXYUREA [Concomitant]
  3. ANAGRELIDE (ANAGRELIDE) [Concomitant]

REACTIONS (5)
  - ASPIRATION PLEURAL CAVITY [None]
  - CARDIAC TAMPONADE [None]
  - DYSPNOEA [None]
  - PERICARDIAL EFFUSION [None]
  - PLEURAL EFFUSION [None]
